FAERS Safety Report 24240327 (Version 1)
Quarter: 2024Q3

REPORT INFORMATION
  Report Type: Spontaneous
  Country: US (occurrence: US)
  Receive Date: 20240822
  Receipt Date: 20240822
  Transmission Date: 20241016
  Serious: No
  Sender: Harrow Health
  Company Number: US-IMP-2024000612

PATIENT
  Age: 78 Year
  Sex: Male

DRUGS (1)
  1. NATACYN [Suspect]
     Active Substance: NATAMYCIN
     Indication: Eye infection fungal
     Dosage: ONE DROP TO RIGHT EYE SIX TIMES?A DAY
     Route: 047
     Dates: start: 20240807

REACTIONS (1)
  - Eye discharge [Unknown]

NARRATIVE: CASE EVENT DATE: 20240808
